FAERS Safety Report 10254125 (Version 1)
Quarter: 2014Q2

REPORT INFORMATION
  Report Type: Spontaneous
  Country: TN (occurrence: TN)
  Receive Date: 20140623
  Receipt Date: 20140623
  Transmission Date: 20141212
  Serious: Yes (Hospitalization, Other)
  Sender: FDA-Public Use
  Company Number: PHHY2014TN076241

PATIENT
  Age: 66 Year
  Sex: Female

DRUGS (4)
  1. GLIVEC [Suspect]
     Indication: GASTROINTESTINAL STROMAL TUMOUR
     Dosage: 400 MG, PER DAY
  2. NEORAL [Concomitant]
     Indication: IMMUNOSUPPRESSION
  3. CELLCEPT [Concomitant]
     Indication: IMMUNOSUPPRESSION
  4. CORTICOSTEROIDS [Concomitant]
     Indication: IMMUNOSUPPRESSION

REACTIONS (5)
  - General physical health deterioration [Unknown]
  - Pancytopenia [Unknown]
  - Renal impairment [Unknown]
  - Gastrointestinal stromal tumour [Unknown]
  - Drug intolerance [Unknown]
